FAERS Safety Report 23685153 (Version 1)
Quarter: 2024Q1

REPORT INFORMATION
  Report Type: Report from Study
  Country: CL (occurrence: CL)
  Receive Date: 20240329
  Receipt Date: 20240329
  Transmission Date: 20240410
  Serious: Yes (Other)
  Sender: FDA-Public Use
  Company Number: CL-ABBVIE-5694209

PATIENT
  Age: 59 Year
  Sex: Female

DRUGS (1)
  1. HUMIRA [Suspect]
     Active Substance: ADALIMUMAB
     Indication: Rheumatoid arthritis
     Dosage: FORM STRENGTH 40 MILLIGRAM
     Route: 058
     Dates: start: 20170805

REACTIONS (4)
  - Ocular neoplasm [Recovering/Resolving]
  - Acromegaly [Recovering/Resolving]
  - Eye inflammation [Unknown]
  - Inflammation [Unknown]

NARRATIVE: CASE EVENT DATE: 20231001
